FAERS Safety Report 21414133 (Version 1)
Quarter: 2022Q4

REPORT INFORMATION
  Report Type: Spontaneous
  Country: US (occurrence: US)
  Receive Date: 20221006
  Receipt Date: 20221006
  Transmission Date: 20230113
  Serious: No
  Sender: FDA-Public Use
  Company Number: US-GSK-US2022AMR139375

PATIENT
  Age: 65 Year

DRUGS (1)
  1. NUCALA [Suspect]
     Active Substance: MEPOLIZUMAB
     Indication: Asthma
     Dosage: 100 MG/ML
     Dates: start: 20220629

REACTIONS (8)
  - Back pain [Unknown]
  - Weight increased [Unknown]
  - Fluid retention [Unknown]
  - Peripheral swelling [Unknown]
  - Joint swelling [Unknown]
  - Oxygen saturation decreased [Unknown]
  - Intervertebral disc protrusion [Unknown]
  - Drug ineffective [Unknown]

NARRATIVE: CASE EVENT DATE: 20220927
